FAERS Safety Report 5222287-8 (Version None)
Quarter: 2007Q1

REPORT INFORMATION
  Report Type: 
  Country: None (occurrence: None)
  Receive Date: 20070129
  Receipt Date: 20070124
  Transmission Date: 20070707
  Serious: Yes (Life-Threatening)
  Sender: FDA-Public Use
  Company Number: 2007AC00145

PATIENT
  Age: 73 Year
  Sex: Female

DRUGS (7)
  1. ATENOLOL [Suspect]
  2. ATENOLOL [Suspect]
  3. DILTIAZEM HCL [Suspect]
  4. CANDESARTAN [Concomitant]
  5. FUROSEMIDE [Concomitant]
  6. METOLAZONE [Concomitant]
  7. ISOSORBIDE MONONITRATE [Concomitant]

REACTIONS (1)
  - SINUS ARREST [None]
